FAERS Safety Report 6184366-0 (Version None)
Quarter: 2009Q2

REPORT INFORMATION
  Report Type: 
  Country: None (occurrence: None)
  Receive Date: 20090508
  Receipt Date: 20090501
  Transmission Date: 20091009
  Serious: Yes (Death, Hospitalization)
  Sender: FDA-Public Use
  Company Number: A0781659A

PATIENT
  Age: 76 Year
  Sex: Male

DRUGS (6)
  1. TYKERB [Suspect]
     Indication: BLADDER CANCER
     Dosage: 1250MG PER DAY
     Route: 048
     Dates: start: 20090420
  2. NYSTATIN [Concomitant]
  3. METOCLOPRAMIDE [Concomitant]
  4. LORAZEPAM [Concomitant]
  5. CRESTOR [Concomitant]
  6. FLUCONAZOLE [Concomitant]

REACTIONS (6)
  - ANOREXIA [None]
  - DEATH [None]
  - DEPRESSED LEVEL OF CONSCIOUSNESS [None]
  - FATIGUE [None]
  - ILL-DEFINED DISORDER [None]
  - METASTASIS [None]
